FAERS Safety Report 11023198 (Version 3)
Quarter: 2015Q2

REPORT INFORMATION
  Report Type: Report from Study
  Country: NL (occurrence: NL)
  Receive Date: 20150413
  Receipt Date: 20150625
  Transmission Date: 20150821
  Serious: Yes (Death, Hospitalization, Other)
  Sender: FDA-Public Use
  Company Number: NL-ABBVIE-15P-114-1373285-00

PATIENT
  Sex: Male

DRUGS (1)
  1. LUCRIN [Suspect]
     Active Substance: LEUPROLIDE ACETATE
     Indication: PROSTATE CANCER
     Route: 058
     Dates: start: 20100823, end: 20150113

REACTIONS (2)
  - Condition aggravated [Fatal]
  - Dysphagia [Fatal]
